FAERS Safety Report 18132392 (Version 1)
Quarter: 2020Q3

REPORT INFORMATION
  Report Type: Spontaneous
  Country: GB (occurrence: GB)
  Receive Date: 20200811
  Receipt Date: 20200811
  Transmission Date: 20201103
  Serious: Yes (Other)
  Sender: FDA-Public Use
  Company Number: GB-LUPIN PHARMACEUTICALS INC.-2020-04272

PATIENT
  Age: 58 Year
  Sex: Male

DRUGS (1)
  1. HYDROCORTISONE BUTYRATE. [Suspect]
     Active Substance: HYDROCORTISONE BUTYRATE
     Indication: DIARRHOEA
     Dosage: UNK
     Route: 042

REACTIONS (1)
  - Hypocalcaemia [Unknown]
